FAERS Safety Report 9845465 (Version 1)
Quarter: 2013Q4

REPORT INFORMATION
  Report Type: Spontaneous
  Country: US (occurrence: None)
  Receive Date: 20131219
  Receipt Date: 20131219
  Transmission Date: 20140711
  Serious: Yes (Other)
  Sender: FDA-Public Use
  Company Number: 163-20785-13090547

PATIENT
  Age: 66 Year
  Sex: Male

DRUGS (1)
  1. THALIDOMID [Suspect]
     Indication: PLASMA CELL MYELOMA
     Dosage: 100 MG, 1 IN 1 D, PO 12/2012 - PERMANTLY DISCONTINUED THERAPY DATES )?
     Route: 048
     Dates: start: 201207

REACTIONS (1)
  - Deep vein thrombosis [None]
